FAERS Safety Report 6816147-6 (Version None)
Quarter: 2010Q3

REPORT INFORMATION
  Report Type: 
  Country: None (occurrence: None)
  Receive Date: 20100705
  Receipt Date: 20100622
  Transmission Date: 20110219
  Serious: Yes (Disabling)
  Sender: FDA-Public Use
  Company Number: FR-ELI_LILLY_AND_COMPANY-FR200905005599

PATIENT
  Sex: Female

DRUGS (3)
  1. FORTEO [Suspect]
     Indication: OSTEOPOROSIS
     Dosage: 20 UG, UNK
     Route: 058
     Dates: start: 20050101, end: 20060501
  2. ACTONEL [Concomitant]
     Indication: OSTEOPOROSIS
     Dosage: 35 MG, WEEKLY (1/W)
     Route: 048
     Dates: start: 20030101, end: 20050606
  3. ZOMETA [Concomitant]
     Indication: OSTEOPOROSIS
     Route: 042
     Dates: start: 20061016, end: 20071130

REACTIONS (6)
  - ANKLE FRACTURE [None]
  - ARTICULAR CALCIFICATION [None]
  - BONE PAIN [None]
  - GAIT DISTURBANCE [None]
  - HYPERAESTHESIA [None]
  - RADIOISOTOPE SCAN [None]
